FAERS Safety Report 7204431-6 (Version None)
Quarter: 2010Q4

REPORT INFORMATION
  Report Type: 
  Country: None (occurrence: None)
  Receive Date: 20101230
  Receipt Date: 20101220
  Transmission Date: 20110411
  Serious: Yes (Hospitalization)
  Sender: FDA-Public Use
  Company Number: AU-BRISTOL-MYERS SQUIBB COMPANY-15310287

PATIENT
  Age: 67 Year
  Sex: Male

DRUGS (20)
  1. DAPAGLIFLOZIN [Suspect]
     Indication: TYPE 2 DIABETES MELLITUS
     Route: 048
     Dates: start: 20100811, end: 20100924
  2. PLACEBO [Suspect]
     Indication: TYPE 2 DIABETES MELLITUS
     Route: 048
     Dates: start: 20100811, end: 20100924
  3. METFORMIN HCL [Suspect]
     Indication: DIABETES MELLITUS
     Dosage: INITIATED PRIOR TO STUDY.
     Route: 048
     Dates: end: 20100924
  4. ASPIRIN [Suspect]
  5. FRUSEMIDE [Suspect]
     Indication: CORONARY ARTERY DISEASE
     Dosage: INITIATED PRIOR TO STUDY,
     Route: 048
  6. RAMIPRIL [Suspect]
     Indication: MICROALBUMINURIA
     Dosage: INITIATED PRIOR TO STUDY START
     Route: 048
  7. PANTOPRAZOLE [Suspect]
     Indication: NAUSEA
     Route: 048
     Dates: start: 20100904, end: 20100924
  8. ACETAMINOPHEN W/ CODEINE [Concomitant]
     Indication: PAIN
     Route: 048
  9. ENDEP [Concomitant]
     Indication: DEPRESSION
     Dosage: INITIATED PRIOR TO STUDY.
     Route: 048
  10. CARVEDILOL [Concomitant]
     Indication: CORONARY ARTERY DISEASE
     Route: 048
  11. AMARYL [Concomitant]
     Indication: DIABETES MELLITUS
     Dosage: INITIATED PRIOR TO STUDY,
     Dates: end: 20100924
  12. LIPITOR [Concomitant]
     Indication: HYPERLIPIDAEMIA
     Dosage: INITIATED PRIOR TO STUDY.
     Route: 048
     Dates: end: 20100924
  13. IMODIUM [Concomitant]
     Indication: DIARRHOEA
     Route: 048
     Dates: start: 20100807, end: 20100823
  14. MIXTARD HUMAN 70/30 [Concomitant]
     Indication: DIABETES MELLITUS
     Dosage: MIXTARD 30/70 TOTAL DAILY DOSE 100
     Route: 051
     Dates: start: 20100601, end: 20100924
  15. ACTRAPID [Concomitant]
     Indication: DIABETES MELLITUS
     Route: 051
     Dates: start: 20100924, end: 20100928
  16. LANTUS [Concomitant]
     Indication: DIABETES MELLITUS
     Route: 051
     Dates: start: 20100928
  17. MOTILIUM [Concomitant]
     Indication: VOMITING
     Dosage: 3 TIMES A DAY AS NEEDED
     Route: 048
     Dates: start: 20100920, end: 20100924
  18. NOVORAPID [Concomitant]
     Indication: DIABETES MELLITUS
     Dates: start: 20100928
  19. STEMETIL [Concomitant]
     Indication: VOMITING
     Route: 048
     Dates: start: 20100820, end: 20100906
  20. STEMETIL [Concomitant]
     Indication: NAUSEA
     Route: 048
     Dates: start: 20100820, end: 20100906

REACTIONS (4)
  - DEHYDRATION [None]
  - GASTROINTESTINAL DISORDER [None]
  - NAUSEA [None]
  - RENAL FAILURE ACUTE [None]
